FAERS Safety Report 5169044-9 (Version None)
Quarter: 2006Q4

REPORT INFORMATION
  Report Type: 
  Country: None (occurrence: None)
  Receive Date: 20061211
  Receipt Date: 20061116
  Transmission Date: 20070319
  Serious: Yes (Other)
  Sender: FDA-Public Use
  Company Number: BR-AVENTIS-200622010GDDC

PATIENT
  Age: 37 Year
  Sex: Male
  Weight: 65 kg

DRUGS (5)
  1. LANTUS [Suspect]
     Indication: DIABETES MELLITUS INSULIN-DEPENDENT
     Route: 058
     Dates: start: 20061101
  2. OPTIPEN (INSULIN PUMP) [Suspect]
     Dates: start: 20061101, end: 20061101
  3. ENALAPRIL MALEATE [Concomitant]
     Indication: PROPHYLAXIS
     Route: 048
     Dates: start: 20050101
  4. ENALAPRIL MALEATE [Concomitant]
     Indication: RENAL DISORDER
     Route: 048
     Dates: start: 20050101
  5. NPH INSULIN [Concomitant]
     Indication: DIABETES MELLITUS
     Route: 058

REACTIONS (4)
  - BLINDNESS [None]
  - RETINAL DETACHMENT [None]
  - RETINAL HAEMORRHAGE [None]
  - VISION BLURRED [None]
